FAERS Safety Report 6249907-3 (Version None)
Quarter: 2009Q2

REPORT INFORMATION
  Report Type: 
  Country: None (occurrence: None)
  Receive Date: 20090625
  Receipt Date: 20090615
  Transmission Date: 20091009
  Serious: Yes (Other)
  Sender: FDA-Public Use
  Company Number: GXKR2009BR06958

PATIENT
  Age: 36 Year
  Sex: Male
  Weight: 78 kg

DRUGS (1)
  1. TRILAX (NGX) (CAFFEINE, CARISOPRODOL, DICLOFENAC, PARACETAMOL) [Suspect]
     Indication: BACK PAIN
     Dosage: TID, ORAL
     Route: 048
     Dates: start: 20090612, end: 20090612

REACTIONS (4)
  - BLISTER [None]
  - BLOOD PRESSURE INCREASED [None]
  - MUCOSA VESICLE [None]
  - ORAL MUCOSAL EXFOLIATION [None]
